FAERS Safety Report 17558081 (Version 1)
Quarter: 2020Q1

REPORT INFORMATION
  Report Type: Spontaneous
  Country: EG (occurrence: EG)
  Receive Date: 20200318
  Receipt Date: 20200318
  Transmission Date: 20200409
  Serious: Yes (Other)
  Sender: FDA-Public Use
  Company Number: NVSC2020EG077739

PATIENT
  Age: 8 Year
  Sex: Female

DRUGS (1)
  1. CATAFLY [Suspect]
     Active Substance: DICLOFENAC
     Indication: PRODUCT USED FOR UNKNOWN INDICATION
     Dosage: 5 ML
     Route: 065

REACTIONS (1)
  - Haemorrhagic diathesis [Recovered/Resolved]
